FAERS Safety Report 8984427 (Version 2)
Quarter: 2013Q1

REPORT INFORMATION
  Report Type: Spontaneous
  Country: IT (occurrence: IT)
  Receive Date: 20121225
  Receipt Date: 20130305
  Transmission Date: 20140127
  Serious: Yes (Hospitalization)
  Sender: FDA-Public Use
  Company Number: IT-SANOFI-AVENTIS-2012SA091509

PATIENT
  Age: 85 Year
  Sex: Female

DRUGS (11)
  1. LASIX [Suspect]
     Indication: HYPERTENSION
     Route: 048
     Dates: start: 20100121, end: 20120922
  2. ALLOPURINOL [Concomitant]
     Route: 048
  3. LANSOX [Concomitant]
  4. LANTUS [Concomitant]
     Indication: DIABETES MELLITUS
     Route: 058
  5. TRINIPLAS [Concomitant]
  6. CARDIRENE [Concomitant]
     Route: 048
  7. HUMULIN [Concomitant]
     Indication: DIABETES MELLITUS
  8. FELODAY [Concomitant]
     Route: 048
  9. TRIATEC [Concomitant]
     Route: 048
  10. INSULIN HUMAN [Concomitant]
  11. LEVOPRAID [Concomitant]

REACTIONS (6)
  - Asthenia [Recovering/Resolving]
  - Dyspnoea [Recovering/Resolving]
  - Tremor [Recovering/Resolving]
  - Respiratory alkalosis [Recovering/Resolving]
  - Gait disturbance [Recovering/Resolving]
  - Hyponatraemia [Recovering/Resolving]
